FAERS Safety Report 9255654 (Version 1)
Quarter: 2013Q2

REPORT INFORMATION
  Report Type: Spontaneous
  Country: US (occurrence: US)
  Receive Date: 20130425
  Receipt Date: 20130425
  Transmission Date: 20140414
  Serious: Yes (Other)
  Sender: FDA-Public Use
  Company Number: US-PFIZER INC-2013127402

PATIENT
  Sex: Female

DRUGS (2)
  1. LYRICA [Suspect]
     Indication: TRIGEMINAL NEURALGIA
     Dosage: UNK, 2X/DAY
  2. BENADRYL [Suspect]
     Dosage: UNK

REACTIONS (4)
  - Muscle twitching [Unknown]
  - Dystonia [Unknown]
  - Dyskinesia [Unknown]
  - Dysarthria [Unknown]
